FAERS Safety Report 9749515 (Version 2)
Quarter: 2013Q4

REPORT INFORMATION
  Report Type: Spontaneous
  Country: IT (occurrence: None)
  Receive Date: 20130912
  Receipt Date: 20131206
  Transmission Date: 20140711
  Serious: Yes (Other)
  Sender: FDA-Public Use
  Company Number: AUR-APL-2013-07453

PATIENT
  Age: 65 Year
  Sex: Female

DRUGS (2)
  1. ATENOLOL (ATENOLOL) [Suspect]
     Indication: HYPERTENSION
     Dosage: 50 MG, 1 D, ORAL
     Route: 048
     Dates: start: 20130320, end: 20130814
  2. PLAUNAZIDE [Suspect]
     Indication: HYPERTENSION
     Dosage: 1 DOSAGE FORMS, 1 D, ORAL
     Route: 048
     Dates: start: 20080814, end: 20130814

REACTIONS (1)
  - Syncope [None]
